FAERS Safety Report 4400034-7 (Version None)
Quarter: 2004Q2

REPORT INFORMATION
  Report Type: 
  Country: None (occurrence: None)
  Receive Date: 20040618
  Receipt Date: 20040519
  Transmission Date: 20050107
  Serious: No
  Sender: FDA-Public Use
  Company Number: US-JNJFOC-20040504725

PATIENT
  Age: 28 Year
  Sex: Female
  Weight: 70.3075 kg

DRUGS (4)
  1. ORTHO EVRA [Suspect]
     Indication: CONTRACEPTION
     Dosage: 1 DOSE(S), 3 IN 4 WEEK, TRANSDERMAL
     Route: 062
     Dates: start: 20040201, end: 20040519
  2. ZIRTEC (CETIRIZINE HYDROCHLORIDE) [Concomitant]
  3. FLONASE [Concomitant]
  4. VITAMIN E [Concomitant]

REACTIONS (1)
  - APPLICATION SITE REACTION [None]
